FAERS Safety Report 7003184-4 (Version None)
Quarter: 2010Q3

REPORT INFORMATION
  Report Type: 
  Country: None (occurrence: None)
  Receive Date: 20100920
  Receipt Date: 20100112
  Transmission Date: 20110219
  Serious: No
  Sender: FDA-Public Use
  Company Number: US-ASTRAZENECA-2009SE33342

PATIENT
  Age: 677 Month
  Sex: Male
  Weight: 70.3 kg

DRUGS (1)
  1. SEROQUEL XR [Suspect]
     Indication: DEPRESSION
     Route: 048
     Dates: start: 20091215

REACTIONS (7)
  - DIZZINESS POSTURAL [None]
  - DRY MOUTH [None]
  - DYSPEPSIA [None]
  - FATIGUE [None]
  - INCREASED APPETITE [None]
  - SINUS CONGESTION [None]
  - TINNITUS [None]
